FAERS Safety Report 5639933-7 (Version None)
Quarter: 2008Q1

REPORT INFORMATION
  Report Type: 
  Country: None (occurrence: None)
  Receive Date: 20080225
  Receipt Date: 20080214
  Transmission Date: 20080703
  Serious: Yes (Other)
  Sender: FDA-Public Use
  Company Number: B0508222A

PATIENT
  Age: 41 Year
  Sex: Female

DRUGS (4)
  1. PAXIL [Suspect]
     Indication: DRUG USE FOR UNKNOWN INDICATION
     Dosage: 10 MG/PER DAY/ORAL
     Route: 048
     Dates: start: 20071215
  2. METHIMAZOLE [Concomitant]
  3. PROPRANOLOL HYDROCHLORIDE [Concomitant]
  4. LORAZEPAM [Concomitant]

REACTIONS (2)
  - GRANULOCYTOPENIA [None]
  - WHITE BLOOD CELL COUNT DECREASED [None]
